FAERS Safety Report 5716150-3 (Version None)
Quarter: 2008Q2

REPORT INFORMATION
  Report Type: 
  Country: None (occurrence: None)
  Receive Date: 20080423
  Receipt Date: 20080415
  Transmission Date: 20081010
  Serious: Yes (Death, Hospitalization)
  Sender: FDA-Public Use
  Company Number: APP200800300

PATIENT
  Age: 15 Year
  Sex: Female

DRUGS (2)
  1. HEPARIN SODIUM INJECTION [Suspect]
     Dosage: 10000 USP UNITS, 2 IN 1 D, UNK
     Dates: start: 20070101, end: 20070101
  2. HEPARIN SODIUM [Suspect]

REACTIONS (4)
  - ABDOMINAL PAIN UPPER [None]
  - DYSPNOEA [None]
  - INFLUENZA LIKE ILLNESS [None]
  - TACHYCARDIA [None]
